FAERS Safety Report 7343594-9 (Version None)
Quarter: 2011Q1

REPORT INFORMATION
  Report Type: 
  Country: None (occurrence: None)
  Receive Date: 20110310
  Receipt Date: 20100625
  Transmission Date: 20110831
  Serious: No
  Sender: FDA-Public Use
  Company Number: A0867165A

PATIENT
  Sex: Female

DRUGS (2)
  1. NICORETTE [Suspect]
  2. NICOTINE POLACRILEX [Suspect]

REACTIONS (6)
  - NICOTINE DEPENDENCE [None]
  - DRY MOUTH [None]
  - INTENTIONAL DRUG MISUSE [None]
  - TONGUE ULCERATION [None]
  - SWOLLEN TONGUE [None]
  - MOUTH ULCERATION [None]
